FAERS Safety Report 5954781-6 (Version None)
Quarter: 2008Q4

REPORT INFORMATION
  Report Type: 
  Country: None (occurrence: None)
  Receive Date: 20081113
  Receipt Date: 20081107
  Transmission Date: 20090506
  Serious: Yes (Hospitalization)
  Sender: FDA-Public Use
  Company Number: 6046940

PATIENT
  Age: 65 Year
  Sex: Male

DRUGS (5)
  1. CARDENSIEL 5 MG (TABLET )(EISOPROLOL FUMARATE) [Suspect]
     Indication: DRUG USE FOR UNKNOWN INDICATION
     Dosage: 5 MG (5 MG,L IN 1 D), ORAL
     Route: 048
     Dates: start: 20080505, end: 20081010
  2. PLAVIX [Concomitant]
  3. LERCANIDIPINE [Concomitant]
  4. APROVEL(TABLET) (IRBESARTAN) [Concomitant]
  5. LASILIX(TABLET)(FUROSEMIDE) [Concomitant]

REACTIONS (3)
  - EOSINOPHILIA [None]
  - NO THERAPEUTIC RESPONSE [None]
  - TOXIC SKIN ERUPTION [None]
